FAERS Safety Report 7284738-7 (Version None)
Quarter: 2011Q1

REPORT INFORMATION
  Report Type: 
  Country: None (occurrence: None)
  Receive Date: 20110210
  Receipt Date: 20110201
  Transmission Date: 20110831
  Serious: No
  Sender: FDA-Public Use
  Company Number: US-BIOGENIDEC-2011BI004529

PATIENT
  Age: 54 Year
  Sex: Male

DRUGS (3)
  1. GABAPENTIN [Concomitant]
     Indication: MUSCULOSKELETAL PAIN
  2. BACLOFEN [Concomitant]
     Indication: MUSCULOSKELETAL STIFFNESS
  3. AVONEX [Suspect]
     Indication: MULTIPLE SCLEROSIS
     Route: 030
     Dates: start: 20100501

REACTIONS (7)
  - DYSARTHRIA [None]
  - MULTIPLE SCLEROSIS [None]
  - PAIN IN EXTREMITY [None]
  - MUSCULOSKELETAL STIFFNESS [None]
  - MEMORY IMPAIRMENT [None]
  - MOBILITY DECREASED [None]
  - BURNING SENSATION [None]
